FAERS Safety Report 13097771 (Version 1)
Quarter: 2017Q1

REPORT INFORMATION
  Report Type: Spontaneous
  Country: US (occurrence: US)
  Receive Date: 20170109
  Receipt Date: 20170109
  Transmission Date: 20170428
  Serious: No
  Sender: FDA-Public Use
  Company Number: US-PFM-2016-01294

PATIENT
  Age: 5 Month
  Sex: Female
  Weight: 3.2 kg

DRUGS (4)
  1. HEMANGEOL [Suspect]
     Active Substance: PROPRANOLOL HYDROCHLORIDE
     Indication: INFANTILE HAEMANGIOMA
     Dosage: 3 ML, BID (2/DAY)
     Route: 048
     Dates: start: 20160927, end: 20161003
  2. HEMANGEOL [Suspect]
     Active Substance: PROPRANOLOL HYDROCHLORIDE
     Dosage: 8 ML, BID (2/DAY)
     Route: 048
     Dates: start: 20161011, end: 20161018
  3. HEMANGEOL [Suspect]
     Active Substance: PROPRANOLOL HYDROCHLORIDE
     Dosage: 1.2 ML, TID (3/DAY)
     Route: 048
     Dates: start: 20161024
  4. HEMANGEOL [Suspect]
     Active Substance: PROPRANOLOL HYDROCHLORIDE
     Dosage: 6 ML, BID (2/DAY)
     Route: 048
     Dates: start: 20161004, end: 20161010

REACTIONS (1)
  - Accidental overdose [Recovered/Resolved]

NARRATIVE: CASE EVENT DATE: 20160927
